FAERS Safety Report 7677116-X (Version None)
Quarter: 2011Q3

REPORT INFORMATION
  Report Type: 
  Country: None (occurrence: None)
  Receive Date: 20110811
  Receipt Date: 20110801
  Transmission Date: 20111222
  Serious: Yes (Hospitalization)
  Sender: FDA-Public Use
  Company Number: US-JNJFOC-20080204888

PATIENT
  Sex: Male
  Weight: 48 kg

DRUGS (5)
  1. CANASA [Concomitant]
     Route: 065
  2. PREDNISONE [Concomitant]
     Route: 065
  3. REMICADE [Suspect]
     Indication: COLITIS ULCERATIVE
     Dosage: MOST RECENT INFUSION; TOTAL 3 DOSES
     Route: 042
     Dates: start: 20080115
  4. REMICADE [Suspect]
     Dosage: INITIAL INFUSION
     Route: 042
     Dates: start: 20071205
  5. MESALAMINE [Concomitant]
     Route: 048

REACTIONS (1)
  - COLITIS ULCERATIVE [None]
